FAERS Safety Report 4371336-8 (Version None)
Quarter: 2004Q2

REPORT INFORMATION
  Report Type: 
  Country: None (occurrence: None)
  Receive Date: 20040603
  Receipt Date: 20040525
  Transmission Date: 20050107
  Serious: Yes (Death)
  Sender: FDA-Public Use
  Company Number: 2004UW10909

PATIENT
  Age: 67 Year
  Sex: Male

DRUGS (5)
  1. ZESTORETIC [Suspect]
     Indication: HYPERTENSION
     Dosage: 10 / 12.5 MG
  2. PLAVIX [Concomitant]
  3. CARDURA [Concomitant]
  4. ARICEPT [Concomitant]
  5. PROSCAR [Concomitant]

REACTIONS (1)
  - HEPATIC FAILURE [None]
